FAERS Safety Report 9666411 (Version 1)
Quarter: 2013Q4

REPORT INFORMATION
  Report Type: Spontaneous
  Country: US (occurrence: US)
  Receive Date: 20131104
  Receipt Date: 20131104
  Transmission Date: 20140711
  Serious: No
  Sender: FDA-Public Use
  Company Number: US-BIOGENIDEC-2013BI085894

PATIENT
  Age: 48 Year
  Sex: Female

DRUGS (5)
  1. TECFIDERA [Suspect]
     Indication: MULTIPLE SCLEROSIS
     Route: 048
     Dates: start: 20130529, end: 20130827
  2. BACLOFEN [Concomitant]
  3. KLONOPIN [Concomitant]
  4. TRAMADOL HCL [Concomitant]
  5. PAXIL [Concomitant]

REACTIONS (5)
  - Burning sensation [Unknown]
  - Pruritus [Unknown]
  - Flushing [Unknown]
  - Nausea [Unknown]
  - Dizziness [Unknown]
